FAERS Safety Report 11809714 (Version 1)
Quarter: 2015Q4

REPORT INFORMATION
  Report Type: Spontaneous
  Country: DK (occurrence: DK)
  Receive Date: 20151208
  Receipt Date: 20151208
  Transmission Date: 20160305
  Serious: Yes (Hospitalization, Disabling)
  Sender: FDA-Public Use
  Company Number: DK-ROCHE-1674022

PATIENT
  Age: 15 Year
  Sex: Female
  Weight: 35 kg

DRUGS (1)
  1. XOLAIR [Suspect]
     Active Substance: OMALIZUMAB
     Indication: PRODUCT USED FOR UNKNOWN INDICATION
     Route: 065
     Dates: start: 201102, end: 201410

REACTIONS (3)
  - Fatigue [Recovered/Resolved]
  - Rhabdomyolysis [Recovered/Resolved with Sequelae]
  - Influenza like illness [Recovered/Resolved]

NARRATIVE: CASE EVENT DATE: 20111022
